FAERS Safety Report 7194262-8 (Version None)
Quarter: 2010Q4

REPORT INFORMATION
  Report Type: 
  Country: None (occurrence: None)
  Receive Date: 20101223
  Receipt Date: 20101221
  Transmission Date: 20110411
  Serious: Yes (Hospitalization)
  Sender: FDA-Public Use
  Company Number: AU-AMGEN-AUSSP2010010573

PATIENT

DRUGS (4)
  1. NPLATE [Suspect]
     Indication: IDIOPATHIC THROMBOCYTOPENIC PURPURA
  2. INTRAGAM                           /00025201/ [Suspect]
     Dosage: 57 G, UNK
  3. PREDNISOLONE [Concomitant]
     Dosage: 2MG, DAILY
  4. BLOOD SUBSTITUTES AND PLASMA PROTEIN FRACTION [Concomitant]
     Dosage: UNK
     Dates: start: 20100831

REACTIONS (7)
  - ACUTE MYOCARDIAL INFARCTION [None]
  - BLOOD PRESSURE INCREASED [None]
  - CHEST PAIN [None]
  - ELECTROCARDIOGRAM ST SEGMENT ELEVATION [None]
  - HYPERTENSION [None]
  - TACHYCARDIA [None]
  - TROPONIN INCREASED [None]
